FAERS Safety Report 24293882 (Version 1)
Quarter: 2024Q3

REPORT INFORMATION
  Report Type: Spontaneous
  Country: US (occurrence: None)
  Receive Date: 20240906
  Receipt Date: 20240906
  Transmission Date: 20241017
  Serious: No
  Sender: DOMPE FARMACEUTICI
  Company Number: US-FARMAPROD-202308-202403-0809

PATIENT
  Sex: Male

DRUGS (4)
  1. OXERVATE [Suspect]
     Active Substance: CENEGERMIN-BKBJ
     Indication: Neurotrophic keratopathy
     Route: 047
     Dates: start: 20240129
  2. PREDNISOLONE ACETATE [Concomitant]
     Active Substance: PREDNISOLONE ACETATE
  3. BESIVANCE [Concomitant]
     Active Substance: BESIFLOXACIN
  4. BIOTRUE HYDRATION BOOST [Concomitant]
     Active Substance: GLYCERIN

REACTIONS (1)
  - Oropharyngeal pain [Not Recovered/Not Resolved]
